FAERS Safety Report 10612539 (Version 2)
Quarter: 2014Q4

REPORT INFORMATION
  Report Type: Spontaneous
  Country: US (occurrence: US)
  Receive Date: 20141127
  Receipt Date: 20141223
  Transmission Date: 20150529
  Serious: No
  Sender: FDA-Public Use
  Company Number: US-BIOGENIDEC-2014BI123082

PATIENT
  Age: 47 Year
  Sex: Male

DRUGS (7)
  1. LUVOX CR [Concomitant]
     Active Substance: FLUVOXAMINE MALEATE
  2. METFORMIN HCI [Concomitant]
  3. TECFIDERA [Suspect]
     Active Substance: DIMETHYL FUMARATE
     Indication: MULTIPLE SCLEROSIS
     Route: 048
  4. TECFIDERA [Suspect]
     Active Substance: DIMETHYL FUMARATE
     Indication: MULTIPLE SCLEROSIS
     Route: 048
     Dates: end: 20141008
  5. LOVASTATIN. [Concomitant]
     Active Substance: LOVASTATIN
  6. XANAX [Concomitant]
     Active Substance: ALPRAZOLAM
  7. TECFIDERA [Suspect]
     Active Substance: DIMETHYL FUMARATE
     Indication: MULTIPLE SCLEROSIS
     Route: 048

REACTIONS (3)
  - Hypersensitivity [Recovered/Resolved]
  - Urticaria [Unknown]
  - Prescribed underdose [Recovered/Resolved]

NARRATIVE: CASE EVENT DATE: 20140925
